FAERS Safety Report 14101455 (Version 1)
Quarter: 2017Q4

REPORT INFORMATION
  Report Type: Spontaneous
  Country: US (occurrence: US)
  Receive Date: 20171017
  Receipt Date: 20171017
  Transmission Date: 20180321
  Serious: Yes (Other)
  Sender: FDA-Public Use
  Company Number: None

PATIENT
  Sex: Female
  Weight: 100.35 kg

DRUGS (19)
  1. HYDROCODONE-APAP [Concomitant]
     Active Substance: ACETAMINOPHEN\HYDROCODONE
  2. FUROSEMIDE. [Concomitant]
     Active Substance: FUROSEMIDE
  3. LORATADINE. [Concomitant]
     Active Substance: LORATADINE
  4. ONDANSETRON [Concomitant]
     Active Substance: ONDANSETRON
  5. ALPRAZOLAM. [Concomitant]
     Active Substance: ALPRAZOLAM
  6. LINZESS [Concomitant]
     Active Substance: LINACLOTIDE
  7. TUMS ULTRA [Concomitant]
     Active Substance: CALCIUM CARBONATE
  8. MIRAPEX [Concomitant]
     Active Substance: PRAMIPEXOLE DIHYDROCHLORIDE
  9. SPRYCEL [Suspect]
     Active Substance: DASATINIB
     Indication: MYELOID LEUKAEMIA
     Route: 048
     Dates: start: 20170612
  10. METHOCARBAMOL. [Concomitant]
     Active Substance: METHOCARBAMOL
  11. POTASSIUM CHLORIDE. [Concomitant]
     Active Substance: POTASSIUM CHLORIDE
  12. ERGOCALCIFEROL. [Concomitant]
     Active Substance: ERGOCALCIFEROL
  13. GABAPENTIN. [Concomitant]
     Active Substance: GABAPENTIN
  14. VITAMIN D3 [Concomitant]
     Active Substance: CHOLECALCIFEROL
  15. RESTASIS [Concomitant]
     Active Substance: CYCLOSPORINE
  16. SEROQUEL [Concomitant]
     Active Substance: QUETIAPINE FUMARATE
  17. RISPERIDONE. [Concomitant]
     Active Substance: RISPERIDONE
  18. ZINC. [Concomitant]
     Active Substance: ZINC
  19. VITAMIN B12 [Concomitant]
     Active Substance: CYANOCOBALAMIN

REACTIONS (2)
  - Nausea [None]
  - Weight increased [None]
